FAERS Safety Report 8552631-5 (Version None)
Quarter: 2012Q3

REPORT INFORMATION
  Report Type: 
  Country: None (occurrence: None)
  Receive Date: 20120719
  Receipt Date: 20120704
  Transmission Date: 20120928
  Serious: Yes (Death, Hospitalization)
  Sender: FDA-Public Use
  Company Number: MCA-N-12-076

PATIENT
  Age: 65 Year
  Sex: Male

DRUGS (3)
  1. RISPERIDONE [Concomitant]
  2. OLANZAPINE [Suspect]
     Indication: SCHIZOPHRENIA
     Dosage: 30 MG/KG/DAY
  3. HALOPERIDOL [Concomitant]

REACTIONS (14)
  - NAUSEA [None]
  - VOMITING [None]
  - TACHYPNOEA [None]
  - DIVERTICULUM [None]
  - DIARRHOEA [None]
  - MALAISE [None]
  - CONDITION AGGRAVATED [None]
  - TACHYCARDIA [None]
  - DISEASE COMPLICATION [None]
  - PSYCHOTIC DISORDER [None]
  - DECREASED APPETITE [None]
  - HYPOTENSION [None]
  - ILEUS PARALYTIC [None]
  - ASPIRATION [None]
